FAERS Safety Report 7798491-1 (Version None)
Quarter: 2011Q4

REPORT INFORMATION
  Report Type: 
  Country: None (occurrence: None)
  Receive Date: 20111005
  Receipt Date: 20110929
  Transmission Date: 20120403
  Serious: No
  Sender: FDA-Public Use
  Company Number: US-PFIZER INC-2011233565

PATIENT
  Sex: Female

DRUGS (1)
  1. PREMARIN [Suspect]
     Dosage: 2G, UNK
     Route: 067

REACTIONS (5)
  - PALPITATIONS [None]
  - DYSPNOEA [None]
  - RASH [None]
  - PRURITUS [None]
  - FEELING JITTERY [None]
